FAERS Safety Report 4682728-1 (Version None)
Quarter: 2005Q2

REPORT INFORMATION
  Report Type: 
  Country: None (occurrence: None)
  Receive Date: 20050606
  Receipt Date: 20050531
  Transmission Date: 20051028
  Serious: Yes (Death)
  Sender: FDA-Public Use
  Company Number: JP-JNJFOC-20050600327

PATIENT
  Age: 74 Year
  Sex: Male

DRUGS (13)
  1. RISPERDAL [Suspect]
     Indication: PARANOIA
     Route: 049
  2. HALOPERIDOL [Suspect]
     Indication: DELIRIUM
  3. HALOPERIDOL [Suspect]
  4. HALOPERIDOL [Suspect]
     Route: 030
  5. HALOPERIDOL [Suspect]
     Route: 030
  6. LORAZEPAM [Concomitant]
     Route: 049
  7. BIPERIDEN HYDROCHLORIDE [Concomitant]
     Route: 049
  8. ITOPRIDE HYDROCHLORIDE [Concomitant]
     Route: 049
  9. MAGNESIUM OXIDE [Concomitant]
     Route: 049
  10. MIANSERIN HYDROCHLORIDE [Concomitant]
     Route: 049
  11. NITRAZEPAM [Concomitant]
     Route: 049
  12. FLUNITRAZEPAM [Concomitant]
     Route: 049
  13. ZOPICLONE [Concomitant]
     Route: 049

REACTIONS (1)
  - VENTRICULAR FIBRILLATION [None]
